FAERS Safety Report 8947212 (Version 1)
Quarter: 2012Q4

REPORT INFORMATION
  Report Type: 
  Country: US (occurrence: US)
  Receive Date: 20121205
  Receipt Date: 20121205
  Transmission Date: 20130627
  Serious: Yes (Other)
  Sender: FDA-Public Use
  Company Number: US-BAYER-200923409NA

PATIENT
  Age: 27 Year
  Sex: Female

DRUGS (1)
  1. BETASERON [Suspect]
     Indication: MULTIPLE SCLEROSIS
     Dosage: 8 miu, QOD
     Route: 058
     Dates: start: 20090202

REACTIONS (14)
  - Gastric ulcer [Not Recovered/Not Resolved]
  - Exposure to toxic agent [Recovering/Resolving]
  - Dermatitis contact [Recovering/Resolving]
  - Dermatitis contact [Recovering/Resolving]
  - Injection site pain [None]
  - Injection site erythema [None]
  - Injection site pruritus [None]
  - Influenza [Recovering/Resolving]
  - Rash [Recovering/Resolving]
  - Injection site rash [Not Recovered/Not Resolved]
  - Injection site paraesthesia [Not Recovered/Not Resolved]
  - Injection site mass [Not Recovered/Not Resolved]
  - Allergy to plants [Not Recovered/Not Resolved]
  - Food allergy [Not Recovered/Not Resolved]
